FAERS Safety Report 5805128-7 (Version None)
Quarter: 2008Q3

REPORT INFORMATION
  Report Type: 
  Country: None (occurrence: None)
  Receive Date: 20080709
  Receipt Date: 20080630
  Transmission Date: 20090109
  Serious: Yes (Other)
  Sender: FDA-Public Use
  Company Number: US-GILEAD-2008-0017119

PATIENT
  Age: 38 Year
  Sex: Female

DRUGS (4)
  1. TRUVADA [Suspect]
     Indication: HIV INFECTION
     Route: 048
     Dates: start: 20070901
  2. ATAZANAVIR SULFATE [Concomitant]
     Indication: HIV INFECTION
     Route: 048
     Dates: start: 20070901
  3. AZT [Concomitant]
     Indication: HIV INFECTION
     Route: 048
     Dates: start: 20070901, end: 20080401
  4. RITONAVIR [Concomitant]
     Indication: HIV INFECTION
     Route: 048
     Dates: start: 20080401

REACTIONS (2)
  - ABORTION INDUCED [None]
  - ULTRASOUND ANTENATAL SCREEN ABNORMAL [None]
